FAERS Safety Report 13385239 (Version 1)
Quarter: 2017Q1

REPORT INFORMATION
  Report Type: Other
  Country: JP (occurrence: JP)
  Receive Date: 20170330
  Receipt Date: 20170330
  Transmission Date: 20170429
  Serious: Yes (Other)
  Sender: FDA-Public Use
  Company Number: JP-EMD SERONO-8149621

PATIENT
  Age: 37 Year
  Sex: Female

DRUGS (2)
  1. RECOMBINANT HUMAN FOLLICLE-STIMULATING HORMONE (R-HFSH) [Suspect]
     Active Substance: FOLLITROPIN
     Indication: OVULATION INDUCTION
  2. CLOMIPHENE CITRATE. [Suspect]
     Active Substance: CLOMIPHENE CITRATE
     Indication: OVULATION INDUCTION
     Route: 048

REACTIONS (2)
  - Abortion spontaneous [Recovered/Resolved]
  - Multiple pregnancy [Recovered/Resolved]
